FAERS Safety Report 20740383 (Version 2)
Quarter: 2024Q3

REPORT INFORMATION
  Report Type: Spontaneous
  Country: US (occurrence: US)
  Receive Date: 20220422
  Receipt Date: 20240723
  Transmission Date: 20241017
  Serious: Yes (Hospitalization)
  Sender: HARMONY BIOSCIENCES
  Company Number: US-HARMONY BIOSCIENCES-2022HMY00721

PATIENT

DRUGS (24)
  1. WAKIX [Suspect]
     Active Substance: PITOLISANT HYDROCHLORIDE
     Indication: Narcolepsy
     Dosage: 35.6 MG, 1X/DAY
     Route: 065
     Dates: start: 20210702
  2. WAKIX [Suspect]
     Active Substance: PITOLISANT HYDROCHLORIDE
     Dosage: 17.8 MG, 1X/DAY
     Route: 065
  3. IBUPROFEN [Concomitant]
     Active Substance: IBUPROFEN
     Dosage: UNK, 6X/DAY (EVERY 4 HOURS)
  4. RESTASIS [Concomitant]
     Active Substance: CYCLOSPORINE
  5. SYSTANE (HYPROMELLOSE 2910 (4000 MPA.S)) [Concomitant]
     Active Substance: HYPROMELLOSE 2910 (4000 MPA.S)
  6. PEPCID [Concomitant]
     Active Substance: FAMOTIDINE
  7. VITAMIN D [Concomitant]
     Active Substance: VITAMIN D NOS
  8. ZOFRAN [Concomitant]
     Active Substance: ONDANSETRON HYDROCHLORIDE
  9. LEVOTHYROXINE [Concomitant]
     Active Substance: LEVOTHYROXINE\LEVOTHYROXINE SODIUM
  10. MORPHINE [Concomitant]
     Active Substance: MORPHINE
     Dosage: 30 MG, 3X/DAY (EVERY 8 HOURS)
  11. FLONASE [Concomitant]
     Active Substance: FLUTICASONE PROPIONATE
  12. EMGALITY [Concomitant]
     Active Substance: GALCANEZUMAB-GNLM
  13. METHOCARBAMOL [Concomitant]
     Active Substance: METHOCARBAMOL
  14. PERCOCET [Concomitant]
     Active Substance: ACETAMINOPHEN\OXYCODONE HYDROCHLORIDE
  15. VALIUM [Concomitant]
     Active Substance: DIAZEPAM
     Dosage: ^3^, 1X/DAY EVERY NIGHT AT BEDTIME
  16. PRASTERONE DHEA AND CALCIUM [Concomitant]
  17. ESTRADIOL [Concomitant]
     Active Substance: ESTRADIOL
  18. TRIAMCINOLONE [Concomitant]
     Active Substance: TRIAMCINOLONE
  19. COLACE [Concomitant]
     Active Substance: DOCUSATE SODIUM
  20. DULCOLAX [Concomitant]
  21. PROMETHAZINE [Concomitant]
     Active Substance: PROMETHAZINE HYDROCHLORIDE
  22. MOTEGRITY [Concomitant]
     Active Substance: PRUCALOPRIDE SUCCINATE
  23. EPIPEN [Concomitant]
     Active Substance: EPINEPHRINE
  24. BOTOX [Concomitant]
     Active Substance: ONABOTULINUMTOXINA

REACTIONS (3)
  - Spinal operation [Not Recovered/Not Resolved]
  - Post procedural complication [Not Recovered/Not Resolved]
  - Adrenocortical insufficiency acute [Unknown]

NARRATIVE: CASE EVENT DATE: 20220401
